FAERS Safety Report 5877239-1 (Version None)
Quarter: 2008Q3

REPORT INFORMATION
  Report Type: 
  Country: None (occurrence: None)
  Receive Date: 20080902
  Receipt Date: 20080819
  Transmission Date: 20090109
  Serious: Yes (Hospitalization)
  Sender: FDA-Public Use
  Company Number: WSDF_00745

PATIENT
  Age: 7 Year
  Sex: Male
  Weight: 27.5 kg

DRUGS (1)
  1. WINRHO SDF [Suspect]
     Indication: IDIOPATHIC THROMBOCYTOPENIC PURPURA
     Dosage: 72.73 UG/KG, ONCE; IV
     Route: 042
     Dates: start: 20080726, end: 20080726

REACTIONS (7)
  - CHILLS [None]
  - HAEMATURIA [None]
  - HAEMOGLOBIN DECREASED [None]
  - INTRAVASCULAR HAEMOLYSIS [None]
  - OFF LABEL USE [None]
  - PYREXIA [None]
  - VOMITING [None]
